FAERS Safety Report 18133417 (Version 2)
Quarter: 2022Q1

REPORT INFORMATION
  Report Type: Report from Study
  Country: US (occurrence: US)
  Receive Date: 20200811
  Receipt Date: 20220123
  Transmission Date: 20220424
  Serious: Yes (Other)
  Sender: FDA-Public Use
  Company Number: US-BIOGEN-2020BI00906381

PATIENT
  Sex: Female

DRUGS (5)
  1. TECFIDERA [Suspect]
     Active Substance: DIMETHYL FUMARATE
     Indication: Multiple sclerosis
     Dosage: 140 MILLIGRAMS FOR A MONTH (PRESUMED 120)
     Route: 065
     Dates: start: 20180330
  2. TECFIDERA [Suspect]
     Active Substance: DIMETHYL FUMARATE
     Route: 065
  3. GABAPENTIN [Suspect]
     Active Substance: GABAPENTIN
     Indication: Product used for unknown indication
     Route: 065
  4. COPAXONE [Suspect]
     Active Substance: GLATIRAMER ACETATE
     Indication: Product used for unknown indication
     Route: 065
  5. LYRICA [Concomitant]
     Active Substance: PREGABALIN
     Indication: Product used for unknown indication
     Route: 065

REACTIONS (26)
  - Cerebrovascular accident [Unknown]
  - Pain [Unknown]
  - Muscle spasms [Unknown]
  - Sciatica [Unknown]
  - Dysstasia [Unknown]
  - Memory impairment [Unknown]
  - Prescribed underdose [Unknown]
  - Radiculopathy [Unknown]
  - Primary progressive multiple sclerosis [Unknown]
  - Drug ineffective [Unknown]
  - Gait inability [Unknown]
  - Fall [Recovered/Resolved]
  - Facial pain [Not Recovered/Not Resolved]
  - Transient ischaemic attack [Unknown]
  - Feeling abnormal [Unknown]
  - Gait disturbance [Unknown]
  - Musculoskeletal disorder [Unknown]
  - Renal injury [Unknown]
  - Osteoporosis [Unknown]
  - Scar [Unknown]
  - Cognitive disorder [Unknown]
  - Emotional distress [Unknown]
  - Pruritus [Unknown]
  - Erythema [Unknown]
  - Burning sensation [Unknown]
  - Flushing [Recovered/Resolved]
